FAERS Safety Report 21585860 (Version 1)
Quarter: 2022Q4

REPORT INFORMATION
  Report Type: Spontaneous
  Country: US (occurrence: US)
  Receive Date: 20221111
  Receipt Date: 20221111
  Transmission Date: 20230113
  Serious: Yes (Life-Threatening, Other)
  Sender: FDA-Public Use
  Company Number: US-ALLERGAN-2236922US

PATIENT
  Sex: Female

DRUGS (1)
  1. VRAYLAR [Suspect]
     Active Substance: CARIPRAZINE
     Indication: Bipolar disorder
     Dosage: 1 DF, QD
     Route: 048
     Dates: start: 202210

REACTIONS (2)
  - Gun shot wound [Recovering/Resolving]
  - Suicide attempt [Unknown]

NARRATIVE: CASE EVENT DATE: 20221001
